FAERS Safety Report 5732642-5 (Version None)
Quarter: 2008Q2

REPORT INFORMATION
  Report Type: 
  Country: None (occurrence: None)
  Receive Date: 20080507
  Receipt Date: 20080428
  Transmission Date: 20081010
  Serious: Yes (Hospitalization)
  Sender: FDA-Public Use
  Company Number: 233992J08USA

PATIENT
  Age: 38 Year
  Sex: Female
  Weight: 56.6996 kg

DRUGS (2)
  1. REBIF [Suspect]
     Indication: MULTIPLE SCLEROSIS
     Dosage: 44 MCG, 3 IN 1 WEEKS, SUBCUTANEOUS
     Route: 058
     Dates: start: 20080327
  2. INSULIN (INSULIN) [Concomitant]

REACTIONS (7)
  - DIABETES MELLITUS [None]
  - DISEASE RECURRENCE [None]
  - FEELING ABNORMAL [None]
  - MULTIPLE SCLEROSIS [None]
  - REFUSAL OF TREATMENT BY PATIENT [None]
  - SPEECH DISORDER [None]
  - STAPHYLOCOCCAL INFECTION [None]
